FAERS Safety Report 5570787-3 (Version None)
Quarter: 2007Q4

REPORT INFORMATION
  Report Type: 
  Country: None (occurrence: None)
  Receive Date: 20071221
  Receipt Date: 20071212
  Transmission Date: 20080405
  Serious: Yes (Hospitalization)
  Sender: FDA-Public Use
  Company Number: CA-ELI_LILLY_AND_COMPANY-CA200712002807

PATIENT
  Sex: Female

DRUGS (6)
  1. FORTEO [Suspect]
     Indication: OSTEOPOROSIS
     Dosage: 20 UG, DAILY (1/D)
     Route: 058
     Dates: start: 20070124, end: 20071211
  2. ANTIHYPERTENSIVES [Concomitant]
     Indication: HYPERTENSION
  3. DIURETICS [Concomitant]
     Indication: FLUID RETENTION
  4. ASPIRIN [Concomitant]
     Dosage: UNK, DAILY (1/D)
  5. CALCIUM [Concomitant]
     Dosage: UNK, DAILY (1/D)
  6. MULTIVITAMINS, COMBINATIONS [Concomitant]
     Dosage: UNK, DAILY (1/D)

REACTIONS (7)
  - ABDOMINAL DISTENSION [None]
  - ANOREXIA [None]
  - DYSPNOEA [None]
  - FATIGUE [None]
  - HOSPITALISATION [None]
  - OEDEMA PERIPHERAL [None]
  - VOMITING [None]
